FAERS Safety Report 6973886-4 (Version None)
Quarter: 2010Q3

REPORT INFORMATION
  Report Type: 
  Country: None (occurrence: None)
  Receive Date: 20100909
  Receipt Date: 20100831
  Transmission Date: 20110219
  Serious: Yes (Other)
  Sender: FDA-Public Use
  Company Number: B0673849A

PATIENT
  Age: 61 Year
  Sex: Male

DRUGS (4)
  1. ASPIRIN [Suspect]
     Dosage: 300MG PER DAY
     Route: 065
  2. DIGOXIN [Suspect]
     Route: 065
  3. DIURETICS [Suspect]
  4. BETA BLOCKERS [Suspect]
     Route: 065

REACTIONS (5)
  - APHASIA [None]
  - CEREBROVASCULAR DISORDER [None]
  - EMBOLISM ARTERIAL [None]
  - LEFT VENTRICULAR DYSFUNCTION [None]
  - SINUS RHYTHM [None]
